FAERS Safety Report 9194697 (Version 1)
Quarter: 2013Q1

REPORT INFORMATION
  Report Type: Spontaneous
  Country: US (occurrence: US)
  Receive Date: 20130327
  Receipt Date: 20130327
  Transmission Date: 20140127
  Serious: No
  Sender: FDA-Public Use
  Company Number: US-ALLERGAN-1208284US

PATIENT
  Age: 61 Year
  Sex: Female

DRUGS (1)
  1. LATISSE 0.03% [Suspect]
     Indication: GROWTH OF EYELASHES
     Dosage: 2 UNITS, UNK
     Route: 061
     Dates: end: 201206

REACTIONS (4)
  - Eye swelling [Recovering/Resolving]
  - Skin hyperpigmentation [Recovered/Resolved]
  - Blepharal pigmentation [Recovered/Resolved]
  - Hair growth abnormal [Recovering/Resolving]
